FAERS Safety Report 9532119 (Version 1)
Quarter: 2013Q1

REPORT INFORMATION
  Report Type: Spontaneous
  Country: US (occurrence: None)
  Receive Date: 20130329
  Receipt Date: 20130329
  Transmission Date: 20140127
  Serious: No
  Sender: FDA-Public Use
  Company Number: 1000042192

PATIENT
  Age: 81 Year
  Sex: Female

DRUGS (6)
  1. LINZESS (LINACLOTIDE) (145 MICROGRAM, TABLET) [Suspect]
     Indication: CONSTIPATION
     Dosage: 145 MCG (145 MCG, 1 IN 1 D), ORAL
     Route: 048
     Dates: start: 20110121
  2. NEXIUM (ESOMEPRAZOLE) (ESOMEPRAZOLE) [Concomitant]
  3. MIRAPEX (PRAMIPEXOLE DIHYDROCHLORIDE) (PRAMIPEXOLE DIHYDROCHLORIDE) [Concomitant]
  4. ZOFRAN (ONDANSETRON) (ONDANSETRON) [Concomitant]
  5. BYSTOLIC (NEBIVOLOL HYDROCHLORIDE) (NEBIVOLOL HYDROCHLORIDE) [Concomitant]
  6. SINGULAIR (MONTELUKAST SODIUM) (MONTELUKAST SODIUM) [Concomitant]

REACTIONS (2)
  - Diarrhoea [None]
  - Abdominal pain [None]
